FAERS Safety Report 17277912 (Version 1)
Quarter: 2020Q1

REPORT INFORMATION
  Report Type: Spontaneous
  Country: JP (occurrence: JP)
  Receive Date: 20200116
  Receipt Date: 20200116
  Transmission Date: 20200409
  Serious: Yes (Other)
  Sender: FDA-Public Use
  Company Number: JP-JNJFOC-20191227209

PATIENT
  Age: 52 Year
  Sex: Male

DRUGS (3)
  1. XEPLION [Suspect]
     Active Substance: PALIPERIDONE PALMITATE
     Indication: SCHIZOPHRENIA
     Dosage: DELTOID MUSCLE
     Route: 030
     Dates: start: 201902
  2. XEPLION [Suspect]
     Active Substance: PALIPERIDONE PALMITATE
     Dosage: DELTOID MUSCLE
     Route: 030
     Dates: start: 201903
  3. XEPLION [Suspect]
     Active Substance: PALIPERIDONE PALMITATE
     Dosage: DELTOID MUSCLE
     Route: 030
     Dates: start: 201904

REACTIONS (1)
  - Congestive cardiomyopathy [Unknown]

NARRATIVE: CASE EVENT DATE: 20191209
